FAERS Safety Report 13346016 (Version 1)
Quarter: 2017Q1

REPORT INFORMATION
  Report Type: Spontaneous
  Country: US (occurrence: US)
  Receive Date: 20170317
  Receipt Date: 20170317
  Transmission Date: 20170428
  Serious: Yes (Life-Threatening, Hospitalization, Disabling, Other)
  Sender: FDA-Public Use
  Company Number: None

PATIENT
  Age: 78 Year
  Sex: Female
  Weight: 63.11 kg

DRUGS (34)
  1. ALOE VERA JUICE + GATORADE [Concomitant]
  2. FOLIC ACID. [Concomitant]
     Active Substance: FOLIC ACID
  3. KELP [Concomitant]
     Active Substance: KELP
  4. HYDROCHLOROTHIZE [Concomitant]
  5. TYLENOL [Concomitant]
     Active Substance: ACETAMINOPHEN
  6. VANICREAM SUNSCREEN [Concomitant]
  7. K-2 [Concomitant]
  8. FORTEO [Suspect]
     Active Substance: TERIPARATIDE
     Indication: PRODUCT USED FOR UNKNOWN INDICATION
     Dates: start: 20121018, end: 20140806
  9. FLORASTOR [Concomitant]
     Active Substance: SACCHAROMYCES CEREVISIAE
  10. DILL PICKLE [Concomitant]
  11. GINGER. [Concomitant]
     Active Substance: GINGER
  12. INOSITOL [Concomitant]
     Active Substance: INOSITOL
  13. SUPER B COMPLEX [Concomitant]
     Active Substance: CYANOCOBALAMIN\DEXPANTHENOL\NIACINAMIDE\PYRIDOXINE HYDROCHLORIDE\RIBOFLAVIN 5^-PHOSPHATE SODIUM\THIAMINE HYDROCHLORIDE\VITAMIN B COMPLEX
  14. PROTEIN-PLAIN YOGURT [Concomitant]
  15. VITAMIN B12 [Concomitant]
     Active Substance: CYANOCOBALAMIN
  16. HOT CHOLATE DARK COCOA [Concomitant]
  17. ALAFALFA [Concomitant]
  18. CINNAMON. [Concomitant]
     Active Substance: CINNAMON
  19. GARLIC. [Concomitant]
     Active Substance: GARLIC
  20. VIT D-3 [Concomitant]
  21. H20 [Concomitant]
  22. SOY PROTEIN [Suspect]
     Active Substance: SOY PROTEIN
  23. TEA [Concomitant]
     Active Substance: TEA LEAF
  24. MELATONIN [Concomitant]
     Active Substance: MELATONIN
  25. KRILL OIL [Concomitant]
     Active Substance: DIETARY SUPPLEMENT
  26. B-6 [Concomitant]
  27. REMEMBER WELL [Concomitant]
  28. PEANUT BUTTER [Concomitant]
  29. COFFEE [Concomitant]
     Active Substance: ARABICA COFFEE BEAN\COFFEE BEAN
  30. VITAMIN D3 [Concomitant]
     Active Substance: CHOLECALCIFEROL
  31. LECITIN [Concomitant]
  32. MAGNESIUM [Concomitant]
     Active Substance: MAGNESIUM
  33. ECHOLINE [Concomitant]
  34. V-C [Concomitant]

REACTIONS (14)
  - Abdominal discomfort [None]
  - Vomiting [None]
  - Hypergammaglobulinaemia benign monoclonal [None]
  - Mass [None]
  - Spinal disorder [None]
  - Tenderness [None]
  - Fall [None]
  - Muscular weakness [None]
  - Abasia [None]
  - Drug ineffective [None]
  - Tooth fracture [None]
  - Diarrhoea [None]
  - Arteritis [None]
  - Hypoaesthesia [None]

NARRATIVE: CASE EVENT DATE: 20121118
